FAERS Safety Report 7615690-X (Version None)
Quarter: 2011Q3

REPORT INFORMATION
  Report Type: 
  Country: None (occurrence: None)
  Receive Date: 20110715
  Receipt Date: 20110715
  Transmission Date: 20111222
  Serious: Yes (Hospitalization)
  Sender: FDA-Public Use
  Company Number: None

PATIENT
  Sex: Female
  Weight: 124.4 kg

DRUGS (3)
  1. PEG-INTRON [Suspect]
     Indication: MYCOSIS FUNGOIDES
     Dosage: 1.5 UG/KG X 2
     Dates: start: 20110531
  2. PEG-INTRON [Suspect]
     Indication: MYCOSIS FUNGOIDES
     Dosage: 1.5 UG/KG X 2
     Dates: start: 20110524
  3. UVB THERAPY [Suspect]
     Indication: MYCOSIS FUNGOIDES
     Dosage: 3X WEEKLY
     Dates: start: 20110524, end: 20110603

REACTIONS (4)
  - ISCHAEMIC HEPATITIS [None]
  - FATIGUE [None]
  - ABSCESS [None]
  - SYSTEMIC CANDIDA [None]
